FAERS Safety Report 11947873 (Version 1)
Quarter: 2016Q1

REPORT INFORMATION
  Report Type: Spontaneous
  Country: BE (occurrence: BE)
  Receive Date: 20160125
  Receipt Date: 20160125
  Transmission Date: 20160526
  Serious: Yes (Other)
  Sender: FDA-Public Use
  Company Number: BE-JNJFOC-20160109328

PATIENT

DRUGS (1)
  1. INFLIXIMAB, RECOMBINANT [Suspect]
     Active Substance: INFLIXIMAB
     Indication: INFLAMMATORY BOWEL DISEASE
     Route: 042

REACTIONS (31)
  - Acute febrile neutrophilic dermatosis [Unknown]
  - Pustular psoriasis [Unknown]
  - Malignant melanoma [Unknown]
  - Basal cell carcinoma [Unknown]
  - Vasculitis [Unknown]
  - Eczema [Unknown]
  - Acne [Unknown]
  - Neutrophilic panniculitis [Unknown]
  - Impetigo [Unknown]
  - Therapeutic response decreased [Unknown]
  - Psoriasis [Unknown]
  - Angular cheilitis [Unknown]
  - Granuloma annulare [Unknown]
  - Lichen planus [Unknown]
  - Pityriasis rosea [Unknown]
  - Alopecia universalis [Unknown]
  - Rosacea [Unknown]
  - Erythema nodosum [Unknown]
  - Drug specific antibody present [Unknown]
  - Folliculitis [Unknown]
  - Herpes zoster [Unknown]
  - Dry skin [Unknown]
  - Tinea pedis [Unknown]
  - Superinfection [Unknown]
  - Melanocytic naevus [Unknown]
  - Urticaria [Unknown]
  - Abscess [Unknown]
  - Cutaneous lupus erythematosus [Unknown]
  - Alopecia areata [Unknown]
  - Skin papilloma [Unknown]
  - Dermatitis psoriasiform [Unknown]
